FAERS Safety Report 18479214 (Version 1)
Quarter: 2020Q4

REPORT INFORMATION
  Report Type: Spontaneous
  Country: IR (occurrence: IR)
  Receive Date: 20201109
  Receipt Date: 20201109
  Transmission Date: 20210114
  Serious: Yes (Hospitalization, Other)
  Sender: FDA-Public Use
  Company Number: IR-PIRAMAL ENTERPRISES LIMITED-2020-PEL-000635

PATIENT

DRUGS (15)
  1. ATRACURIUM [Suspect]
     Active Substance: ATRACURIUM
     Indication: INDUCTION OF ANAESTHESIA
     Dosage: 40 MILLIGRAM
     Route: 065
  2. THIOPENTAL SODIUM. [Suspect]
     Active Substance: THIOPENTAL SODIUM
     Indication: INDUCTION OF ANAESTHESIA
     Dosage: 400 MILLIGRAM
     Route: 065
  3. NITROUS OXIDE. [Concomitant]
     Active Substance: NITROUS OXIDE
     Indication: MAINTENANCE OF ANAESTHESIA
  4. MIDAZOLAM. [Suspect]
     Active Substance: MIDAZOLAM
     Indication: HYPOTONIA
  5. NEOSTIGMINE. [Concomitant]
     Active Substance: NEOSTIGMINE METHYLSULFATE
     Indication: NEUROMUSCULAR BLOCKADE REVERSAL
     Dosage: 2.5 MILLIGRAM
     Route: 042
  6. ISOFLURANE. [Suspect]
     Active Substance: ISOFLURANE
     Indication: MAINTENANCE OF ANAESTHESIA
     Dosage: 1 MAC
  7. FENTANYL. [Suspect]
     Active Substance: FENTANYL
     Indication: INDUCTION OF ANAESTHESIA
     Dosage: 200 MICROGRAM
     Route: 065
  8. ATRACURIUM [Suspect]
     Active Substance: ATRACURIUM
     Indication: HYPOTONIA
  9. FENTANYL. [Suspect]
     Active Substance: FENTANYL
     Indication: HYPOTONIA
  10. THIOPENTAL SODIUM. [Suspect]
     Active Substance: THIOPENTAL SODIUM
     Indication: HYPOTONIA
  11. OXYGEN. [Concomitant]
     Active Substance: OXYGEN
     Indication: MAINTENANCE OF ANAESTHESIA
     Dosage: 50 PERCENT
  12. MIDAZOLAM. [Suspect]
     Active Substance: MIDAZOLAM
     Indication: INDUCTION OF ANAESTHESIA
     Dosage: 2 MILLIGRAM
     Route: 065
  13. OXYGEN. [Concomitant]
     Active Substance: OXYGEN
     Indication: PREMEDICATION
     Dosage: 100 PERCENT
  14. MORPHINE [Suspect]
     Active Substance: MORPHINE
     Indication: MAINTENANCE OF ANAESTHESIA
     Dosage: 8 MILLIGRAM
     Route: 042
  15. ATROPINE. [Concomitant]
     Active Substance: ATROPINE
     Indication: NEUROMUSCULAR BLOCKADE REVERSAL
     Dosage: 1 MILLIGRAM
     Route: 065

REACTIONS (1)
  - Acute postoperative sialadenitis [Recovered/Resolved]
